FAERS Safety Report 7860054-7 (Version None)
Quarter: 2011Q4

REPORT INFORMATION
  Report Type: 
  Country: None (occurrence: None)
  Receive Date: 20111025
  Receipt Date: 20111010
  Transmission Date: 20120403
  Serious: Yes (Other)
  Sender: FDA-Public Use
  Company Number: BE-1187864

PATIENT
  Age: 84 Year
  Sex: Female

DRUGS (9)
  1. DIPHANTOINE [Concomitant]
  2. ZANTAC [Concomitant]
  3. MAGNESIUM [Concomitant]
  4. AZOPT [Suspect]
     Indication: OPEN ANGLE GLAUCOMA
     Dosage: (2 TIMES A DAY OPHTHALMIC)
     Route: 047
  5. INDERAL [Concomitant]
  6. MONTELUKAST SODIUM [Concomitant]
  7. FENOFIBRATE [Concomitant]
  8. ASAFLOW [Concomitant]
  9. PERSANTINE [Concomitant]

REACTIONS (3)
  - FATIGUE [None]
  - DYSPNOEA [None]
  - GAIT DISTURBANCE [None]
